FAERS Safety Report 7677209-7 (Version None)
Quarter: 2011Q3

REPORT INFORMATION
  Report Type: 
  Country: None (occurrence: None)
  Receive Date: 20110811
  Receipt Date: 20110804
  Transmission Date: 20111222
  Serious: Yes (Other)
  Sender: FDA-Public Use
  Company Number: IT-MPIJNJ-2011-03180

PATIENT

DRUGS (1)
  1. VELCADE [Suspect]
     Indication: MULTIPLE MYELOMA
     Dosage: 1.3 UNK, UNK
     Route: 042
     Dates: start: 20100409, end: 20100914

REACTIONS (2)
  - AUTONOMIC NEUROPATHY [None]
  - HYPOTENSION [None]
